FAERS Safety Report 8862382 (Version 1)
Quarter: 2012Q4

REPORT INFORMATION
  Report Type: 
  Country: NL (occurrence: NL)
  Receive Date: 20121026
  Receipt Date: 20121026
  Transmission Date: 20130627
  Serious: Yes (Hospitalization)
  Sender: FDA-Public Use
  Company Number: NL-PFIZER INC-2012263696

PATIENT
  Sex: Female
  Weight: 97 kg

DRUGS (11)
  1. GENOTROPIN [Suspect]
     Indication: GROWTH HORMONE DEFICIENCY
     Dosage: 1.6 mg, 7/wk
     Route: 058
     Dates: start: 20050302
  2. ETHINYLESTRADIOL [Concomitant]
     Indication: BLOOD LUTEINISING HORMONE DECREASED
     Dosage: UNK
  3. ETHINYLESTRADIOL [Concomitant]
     Indication: BLOOD FOLLICLE STIMULATING HORMONE DECREASED
  4. ETHINYLESTRADIOL [Concomitant]
     Indication: HYPOGONADISM FEMALE
  5. CYPROTERONE ACETATE [Concomitant]
     Indication: HIRSUTISM
     Dosage: UNK
  6. ALPRAZOLAM [Concomitant]
     Indication: HYPERVENTILATION
     Dosage: UNK
     Dates: start: 19991015
  7. LEVOTHYROXINE [Concomitant]
     Indication: BLOOD THYROID STIMULATING HORMONE DECREASED
     Dosage: UNK
     Dates: start: 20000426
  8. HYDROCORTISONE [Concomitant]
     Indication: BLOOD CORTICOTROPHIN DECREASED
     Dosage: UNK
     Dates: start: 20010122
  9. DIANE [Concomitant]
     Indication: BLOOD LUTEINISING HORMONE DECREASED
     Dosage: UNK
     Dates: start: 20060314
  10. DIANE [Concomitant]
     Indication: BLOOD FOLLICLE STIMULATING HORMONE DECREASED
  11. THYROX [Concomitant]
     Indication: BLOOD THYROID STIMULATING HORMONE DECREASED
     Dosage: UNK
     Dates: start: 20030415

REACTIONS (1)
  - Plastic surgery [Unknown]
